FAERS Safety Report 23237755 (Version 2)
Quarter: 2023Q4

REPORT INFORMATION
  Report Type: Report from Study
  Country: KR (occurrence: KR)
  Receive Date: 20231128
  Receipt Date: 20231206
  Transmission Date: 20240110
  Serious: Yes (Hospitalization)
  Sender: FDA-Public Use
  Company Number: KR-ABBVIE-5510821

PATIENT
  Age: 51 Year
  Sex: Male
  Weight: 65 kg

DRUGS (12)
  1. RINVOQ [Suspect]
     Active Substance: UPADACITINIB
     Indication: Dermatitis atopic
     Dosage: 1 TABLET?FORM STRENGTH: 15 MILLIGRAM?MODIFIED-RELEASE FILM-COATED TABLET
     Route: 048
     Dates: start: 20230615
  2. BISOPROLOL FUMARATE [Concomitant]
     Active Substance: BISOPROLOL FUMARATE
     Indication: Hypertension
     Dosage: FORM STRENGTH: 2.5MG
     Dates: start: 20210421
  3. METHIMAZOLE [Concomitant]
     Active Substance: METHIMAZOLE
     Indication: Hypertension
     Dates: start: 20210421
  4. DIOVAN [Concomitant]
     Active Substance: VALSARTAN
     Indication: Hypertension
     Dosage: FILE COATED TAB ?FORM STRENGTH: 80MG
     Dates: start: 20210421
  5. LEVOCETIRIZINE HYDROCHLORIDE [Concomitant]
     Active Substance: LEVOCETIRIZINE HYDROCHLORIDE
     Indication: Dermatitis atopic
     Dosage: FORM STRENGTH: 5MG?XYZAL
     Dates: start: 20221017
  6. Difuco (Diflucortolone valaerate) [Concomitant]
     Indication: Dermatitis atopic
     Dosage: FORM STRENGTH: 0.3% 10G?FREQUENCY TEXT: PRN
     Dates: start: 20230227
  7. Bepoten (Bepotastine besilate) [Concomitant]
     Indication: Dermatitis atopic
     Dosage: FORM STRENGTH: 10MG
     Dates: start: 20230313
  8. Stogar (Lafutidine) [Concomitant]
     Indication: Gastritis prophylaxis
     Dosage: FORM STRENGTH: 10MG
     Dates: start: 20230109
  9. Rytmonorm SR (Propafenone hydrochloride) [Concomitant]
     Indication: Atrial fibrillation
     Dosage: CAP ?FORM STRENGTH: 225MG
     Dates: start: 20210421
  10. CARBOXYMETHYLCELLULOSE SODIUM [Concomitant]
     Active Substance: CARBOXYMETHYLCELLULOSE SODIUM
     Indication: Conjunctivitis allergic
     Dosage: DROP?FORM STRENGTH: 0.5%?REFRESHPLUSEYEDROP
     Dates: start: 20230327
  11. PROTOPIC [Concomitant]
     Active Substance: TACROLIMUS
     Indication: Dermatitis atopic
     Dosage: 0.03% 30MG?FREQUENCY TEXT: PRN
     Dates: start: 20230508
  12. Lixiana (Edoxaban tosylate hydrate) [Concomitant]
     Indication: Atrial fibrillation
     Dosage: FORM STRENGTH: 60MG
     Dates: start: 20210421

REACTIONS (1)
  - Cellulitis [Recovered/Resolved]

NARRATIVE: CASE EVENT DATE: 20230801
